FAERS Safety Report 9725947 (Version 1)
Quarter: 2013Q4

REPORT INFORMATION
  Report Type: Spontaneous
  Country: US (occurrence: US)
  Receive Date: 20131203
  Receipt Date: 20131203
  Transmission Date: 20140711
  Serious: No
  Sender: FDA-Public Use
  Company Number: US-PFIZER INC-2013341257

PATIENT
  Sex: Female

DRUGS (2)
  1. ADVIL [Suspect]
     Indication: HEADACHE
     Dosage: 2 TABLETS ON FIRST DAY AND 2 TABLETS ON SECOND DAY
     Dates: start: 201309, end: 201310
  2. ADVIL [Suspect]
     Indication: PAIN

REACTIONS (1)
  - Throat irritation [Unknown]
